FAERS Safety Report 5821683-5 (Version None)
Quarter: 2008Q3

REPORT INFORMATION
  Report Type: 
  Country: None (occurrence: None)
  Receive Date: 20080724
  Receipt Date: 20080721
  Transmission Date: 20090109
  Serious: Yes (Hospitalization)
  Sender: FDA-Public Use
  Company Number: TW-AVENTIS-200816616GDDC

PATIENT
  Age: 47 Year
  Sex: Female
  Weight: 53.3 kg

DRUGS (5)
  1. TAXOTERE [Suspect]
     Indication: BREAST CANCER
     Route: 042
     Dates: start: 20080703, end: 20080703
  2. ADRIAMYCIN PFS [Suspect]
     Indication: BREAST CANCER
     Route: 042
     Dates: start: 20080410, end: 20080703
  3. ENDOXAN [Suspect]
     Indication: BREAST CANCER
     Route: 042
     Dates: start: 20080410, end: 20080703
  4. KYTRIL                             /01178101/ [Concomitant]
     Route: 042
     Dates: start: 20080703, end: 20080703
  5. DECADRON [Concomitant]
     Route: 048
     Dates: start: 20080628, end: 20080702

REACTIONS (2)
  - NEUTROPENIA [None]
  - PYREXIA [None]
